FAERS Safety Report 5345244-X (Version None)
Quarter: 2007Q2

REPORT INFORMATION
  Report Type: 
  Country: None (occurrence: None)
  Receive Date: 20070605
  Receipt Date: 20070523
  Transmission Date: 20071010
  Serious: Yes (Disabling, Other)
  Sender: FDA-Public Use
  Company Number: PHEH2007US07844

PATIENT
  Sex: Female

DRUGS (1)
  1. ZELNORM [Suspect]

REACTIONS (12)
  - ANGINA PECTORIS [None]
  - ANHEDONIA [None]
  - ANXIETY [None]
  - CARDIAC DISORDER [None]
  - CHEST PAIN [None]
  - DEFORMITY [None]
  - DISABILITY [None]
  - EMOTIONAL DISTRESS [None]
  - INJURY [None]
  - LIFE EXPECTANCY SHORTENED [None]
  - MYOCARDIAL INFARCTION [None]
  - PAIN [None]
